FAERS Safety Report 26130194 (Version 1)
Quarter: 2025Q4

REPORT INFORMATION
  Report Type: Spontaneous
  Country: US (occurrence: None)
  Receive Date: 20251205
  Receipt Date: 20251205
  Transmission Date: 20260118
  Serious: No
  Sender: FDA-CTU
  Company Number: None

PATIENT
  Age: 68 Year
  Sex: Male
  Weight: 93 kg

DRUGS (11)
  1. CABOMETYX [Suspect]
     Active Substance: CABOZANTINIB S-MALATE
     Indication: Renal cancer
     Dosage: FREQUENCY : DAILY;
     Route: 048
     Dates: start: 20251112
  2. LOPERAMIDE [Concomitant]
     Active Substance: LOPERAMIDE
  3. PROCHLORPERAZINE [Concomitant]
     Active Substance: PROCHLORPERAZINE
  4. ONDANSETRON [Concomitant]
     Active Substance: ONDANSETRON
  5. FERROUS SULFATE [Concomitant]
     Active Substance: FERROUS SULFATE
  6. TAMSULOSIN [Concomitant]
     Active Substance: TAMSULOSIN
  7. FINASTERIDE [Concomitant]
     Active Substance: FINASTERIDE
  8. OXYCODONE [Concomitant]
     Active Substance: OXYCODONE
  9. OMEPRAZOLE [Concomitant]
     Active Substance: OMEPRAZOLE
  10. LOSARTAN [Concomitant]
     Active Substance: LOSARTAN
  11. GABAPENTIN [Concomitant]
     Active Substance: GABAPENTIN

REACTIONS (2)
  - Rash pruritic [None]
  - Rash [None]

NARRATIVE: CASE EVENT DATE: 20251205
